FAERS Safety Report 7414128-5 (Version None)
Quarter: 2011Q2

REPORT INFORMATION
  Report Type: 
  Country: None (occurrence: None)
  Receive Date: 20110411
  Receipt Date: 20110411
  Transmission Date: 20111010
  Serious: No
  Sender: FDA-Public Use
  Company Number: None

PATIENT
  Sex: Female
  Weight: 106.1417 kg

DRUGS (1)
  1. ACYCLOVIR [Suspect]
     Indication: HERPES SIMPLEX
     Dosage: 400 MG TWICE DAILY PO
     Route: 048
     Dates: start: 20071017

REACTIONS (2)
  - DISEASE PROGRESSION [None]
  - PRODUCT USED FOR UNKNOWN INDICATION [None]
